FAERS Safety Report 11180259 (Version 3)
Quarter: 2015Q2

REPORT INFORMATION
  Report Type: Report from Study
  Country: JP (occurrence: JP)
  Receive Date: 20150611
  Receipt Date: 20150617
  Transmission Date: 20150821
  Serious: Yes (Other)
  Sender: FDA-Public Use
  Company Number: JP-TEVA-569512ISR

PATIENT
  Age: 71 Year
  Sex: Female

DRUGS (20)
  1. FILGRASTIM BS INJ. ^NK^ (FILGRASTIM [GENETICAL RECOMBINATION]) [Suspect]
     Active Substance: FILGRASTIM
     Dosage: 75 MICROGRAM DAILY;
     Route: 058
     Dates: start: 20140902, end: 20140903
  2. CARBOPLATIN. [Suspect]
     Active Substance: CARBOPLATIN
     Dosage: 423 MILLIGRAM DAILY;
     Route: 042
     Dates: start: 20140821, end: 20140821
  3. FILGRASTIM BS INJ. ^NK^ (FILGRASTIM [GENETICAL RECOMBINATION]) [Suspect]
     Active Substance: FILGRASTIM
     Dosage: 75 MICROGRAM DAILY;
     Route: 058
     Dates: start: 20140812, end: 20140813
  4. CARBOPLATIN. [Suspect]
     Active Substance: CARBOPLATIN
     Dosage: 400 MILLIGRAM DAILY;
     Route: 042
     Dates: start: 20141002, end: 20141002
  5. CARBOPLATIN. [Suspect]
     Active Substance: CARBOPLATIN
     Dosage: 518 MILLIGRAM DAILY;
     Route: 042
     Dates: start: 20140703, end: 20140703
  6. CARBOPLATIN. [Suspect]
     Active Substance: CARBOPLATIN
     Dosage: 412 MILLIGRAM DAILY;
     Route: 042
     Dates: start: 20140731, end: 20140731
  7. PACLITAXEL. [Suspect]
     Active Substance: PACLITAXEL
     Dosage: 224 MILLIGRAM DAILY;
     Route: 042
     Dates: start: 20140821, end: 20140821
  8. PACLITAXEL. [Suspect]
     Active Substance: PACLITAXEL
     Dosage: 210 MILLIGRAM DAILY;
     Route: 042
     Dates: start: 20141002, end: 20141002
  9. FILGRASTIM BS INJ. ^NK^ (FILGRASTIM [GENETICAL RECOMBINATION]) [Suspect]
     Active Substance: FILGRASTIM
     Dosage: 75 MICROGRAM DAILY;
     Route: 058
     Dates: start: 20140715, end: 20140716
  10. FILGRASTIM BS INJ. ^NK^ (FILGRASTIM [GENETICAL RECOMBINATION]) [Suspect]
     Active Substance: FILGRASTIM
     Dosage: 75 MICROGRAM DAILY;
     Route: 058
     Dates: start: 20141010, end: 20141010
  11. PACLITAXEL. [Suspect]
     Active Substance: PACLITAXEL
     Indication: UTERINE CANCER
     Dosage: 280 MILLIGRAM DAILY;
     Route: 042
     Dates: start: 20140612, end: 20140612
  12. PACLITAXEL. [Suspect]
     Active Substance: PACLITAXEL
     Dosage: 223 MILLIGRAM DAILY;
     Route: 042
     Dates: start: 20140731, end: 20140731
  13. FILGRASTIM BS INJ. ^NK^ (FILGRASTIM [GENETICAL RECOMBINATION]) [Suspect]
     Active Substance: FILGRASTIM
     Dosage: 75 MICROGRAM DAILY;
     Route: 058
     Dates: start: 20140919, end: 20140919
  14. CARBOPLATIN. [Suspect]
     Active Substance: CARBOPLATIN
     Indication: UTERINE CANCER
     Dosage: 546 MILLIGRAM DAILY;
     Route: 042
     Dates: start: 20140612, end: 20140612
  15. FILGRASTIM BS INJ. ^NK^ (FILGRASTIM [GENETICAL RECOMBINATION]) [Suspect]
     Active Substance: FILGRASTIM
     Dosage: 75 MICROGRAM DAILY;
     Route: 058
     Dates: start: 20140711, end: 20140711
  16. FILGRASTIM BS INJ. ^NK^ (FILGRASTIM [GENETICAL RECOMBINATION]) [Suspect]
     Active Substance: FILGRASTIM
     Dosage: 75 MICROGRAM DAILY;
     Route: 058
     Dates: start: 20140829, end: 20140829
  17. FILGRASTIM BS INJ. ^NK^ (FILGRASTIM [GENETICAL RECOMBINATION]) [Suspect]
     Active Substance: FILGRASTIM
     Indication: AUTOIMMUNE NEUTROPENIA
     Dosage: 75 MICROGRAM DAILY;
     Route: 058
     Dates: start: 20140624, end: 20140625
  18. CARBOPLATIN. [Suspect]
     Active Substance: CARBOPLATIN
     Dosage: 397 MILLIGRAM DAILY;
     Route: 042
     Dates: start: 20140911, end: 20140911
  19. PACLITAXEL. [Suspect]
     Active Substance: PACLITAXEL
     Dosage: 280 MILLIGRAM DAILY;
     Route: 042
     Dates: start: 20140703, end: 20140703
  20. PACLITAXEL. [Suspect]
     Active Substance: PACLITAXEL
     Dosage: 210 MILLIGRAM DAILY;
     Route: 042
     Dates: start: 20140911, end: 20140911

REACTIONS (1)
  - Bone marrow failure [Recovered/Resolved]

NARRATIVE: CASE EVENT DATE: 20140715
